FAERS Safety Report 25283645 (Version 3)
Quarter: 2025Q2

REPORT INFORMATION
  Report Type: Spontaneous
  Country: US (occurrence: US)
  Receive Date: 20250508
  Receipt Date: 20250521
  Transmission Date: 20250716
  Serious: Yes (Other)
  Sender: CHIESI
  Company Number: US-CHIESI-2025CHF02512

PATIENT
  Sex: Female
  Weight: 64.999 kg

DRUGS (1)
  1. FILSUVEZ [Suspect]
     Active Substance: BIRCH TRITERPENES
     Indication: Epidermolysis bullosa
     Route: 061
     Dates: start: 20250328

REACTIONS (6)
  - Pneumonia [Recovering/Resolving]
  - Wrong technique in product usage process [Recovering/Resolving]
  - Blister [Recovering/Resolving]
  - Treatment noncompliance [Recovering/Resolving]
  - Therapeutic product effect incomplete [Not Recovered/Not Resolved]
  - Product complaint [Recovered/Resolved]
